FAERS Safety Report 7523420-5 (Version None)
Quarter: 2011Q2

REPORT INFORMATION
  Report Type: 
  Country: None (occurrence: None)
  Receive Date: 20110603
  Receipt Date: 20110527
  Transmission Date: 20111010
  Serious: Yes (Other)
  Sender: FDA-Public Use
  Company Number: B0723891A

PATIENT
  Sex: Male

DRUGS (2)
  1. ATROVENT [Suspect]
     Route: 065
     Dates: start: 20101001
  2. SERETIDE [Suspect]
     Route: 065
     Dates: start: 20101001

REACTIONS (2)
  - DYSGEUSIA [None]
  - ANOSMIA [None]
